FAERS Safety Report 6494413-4 (Version None)
Quarter: 2009Q4

REPORT INFORMATION
  Report Type: 
  Country: None (occurrence: None)
  Receive Date: 20091214
  Receipt Date: 20090213
  Transmission Date: 20100525
  Serious: Yes (Other)
  Sender: FDA-Public Use
  Company Number: US-BRISTOL-MYERS SQUIBB COMPANY-14508519

PATIENT
  Age: 37 Year
  Sex: Female

DRUGS (2)
  1. ABILIFY [Suspect]
     Indication: MAJOR DEPRESSION
     Dosage: DOSE REDUCED TO 1 MG ON 08DEC2008, INCREASED TO 2MG ON 29DEC2008.
     Dates: start: 20081201
  2. CYMBALTA [Suspect]
     Indication: MAJOR DEPRESSION

REACTIONS (2)
  - BLOOD GLUCOSE INCREASED [None]
  - SOMNOLENCE [None]
